FAERS Safety Report 16966270 (Version 4)
Quarter: 2019Q4

REPORT INFORMATION
  Report Type: Spontaneous
  Country: US (occurrence: US)
  Receive Date: 20191028
  Receipt Date: 20191230
  Transmission Date: 20200122
  Serious: Yes (Hospitalization, Other)
  Sender: FDA-Public Use
  Company Number: US-PFIZER INC-2019339720

PATIENT
  Age: 61 Year
  Sex: Female
  Weight: 70 kg

DRUGS (5)
  1. CARVEDILOL. [Concomitant]
     Active Substance: CARVEDILOL
     Dosage: UNK
     Dates: start: 2011
  2. LISINOPRIL. [Concomitant]
     Active Substance: LISINOPRIL
     Dosage: UNK
     Dates: start: 2011
  3. IBRANCE [Suspect]
     Active Substance: PALBOCICLIB
     Indication: BREAST CANCER METASTATIC
     Dosage: 100 MG, 1X/DAY
  4. FUROSEMIDE. [Concomitant]
     Active Substance: FUROSEMIDE
     Dosage: UNK
     Dates: start: 2011
  5. LETROZOLE. [Concomitant]
     Active Substance: LETROZOLE
     Dosage: UNK
     Dates: start: 2018

REACTIONS (4)
  - Malaise [Recovering/Resolving]
  - Cellulitis [Recovering/Resolving]
  - Lymphoedema [Not Recovered/Not Resolved]
  - Bendopnoea [Unknown]

NARRATIVE: CASE EVENT DATE: 20191020
